FAERS Safety Report 10409305 (Version 2)
Quarter: 2015Q1

REPORT INFORMATION
  Report Type: Spontaneous
  Country: US (occurrence: None)
  Receive Date: 20140131
  Receipt Date: 20150129
  Transmission Date: 20150720
  Serious: Yes (Other)
  Sender: FDA-Public Use
  Company Number: 102990U

PATIENT
  Age: 42 Year
  Sex: Female
  Weight: 72.6 kg

DRUGS (2)
  1. KEPPRA [Suspect]
     Active Substance: LEVETIRACETAM
     Indication: SEIZURE
  2. DILANTIN [Concomitant]
     Active Substance: PHENYTOIN

REACTIONS (4)
  - Seizure [None]
  - Partial seizures [None]
  - Confusional state [None]
  - Generalised tonic-clonic seizure [None]

NARRATIVE: CASE EVENT DATE: 201305
